FAERS Safety Report 10619318 (Version 1)
Quarter: 2014Q4

REPORT INFORMATION
  Report Type: Spontaneous
  Country: DE (occurrence: DE)
  Receive Date: 20141202
  Receipt Date: 20141202
  Transmission Date: 20150529
  Serious: Yes (Other)
  Sender: FDA-Public Use
  Company Number: DE-PFIZER INC-2014329556

PATIENT
  Age: 33 Year
  Sex: Female
  Weight: 80 kg

DRUGS (8)
  1. FOLIC ACID. [Concomitant]
     Active Substance: FOLIC ACID
     Indication: PROPHYLAXIS OF NEURAL TUBE DEFECT
     Dosage: 5 MG, DAILY, 0-39.5 GW
     Route: 048
     Dates: start: 20120604, end: 20130309
  2. SERTRALINE HCL [Suspect]
     Active Substance: SERTRALINE HYDROCHLORIDE
     Indication: BIPOLAR DISORDER
     Dosage: 100 MG, 1X/DAY, 0-39.5 GW
     Route: 048
     Dates: start: 20120604
  3. L-THYROXIN [Concomitant]
     Active Substance: LEVOTHYROXINE SODIUM
     Indication: HYPOTHYROIDISM
     Dosage: 100 ?G, DAILY - UP TO 75 UG, 0-39.5 GW
     Route: 048
     Dates: start: 20120604, end: 20130309
  4. SEROQUEL [Suspect]
     Active Substance: QUETIAPINE FUMARATE
     Indication: BIPOLAR DISORDER
     Dosage: 600 MG, 1X/DAY, 0-39.5 GW
     Route: 048
     Dates: start: 20120604
  5. METFORMIN [Concomitant]
     Active Substance: METFORMIN HYDROCHLORIDE
     Indication: POLYCYSTIC OVARIES
     Dosage: 1500 MG, DAILY, 0-7.1 GW
     Route: 048
     Dates: start: 20120604, end: 20120724
  6. AMOXYPEN [Concomitant]
     Active Substance: AMOXICILLIN
     Indication: C-REACTIVE PROTEIN INCREASED
     Dosage: 500 MG, 3X/DAY, 32.34.4 GW
  7. QUILONUM [Suspect]
     Active Substance: LITHIUM CARBONATE
     Indication: BIPOLAR DISORDER
     Dosage: 1350 MG/D UP TO 1150, 0-39.5 GW
     Route: 048
     Dates: start: 20120604
  8. LAMOTRIGINE. [Suspect]
     Active Substance: LAMOTRIGINE
     Indication: BIPOLAR DISORDER
     Dosage: 150 MG, 2X/DAY, 0-39.5 GW
     Route: 048
     Dates: start: 20120604

REACTIONS (3)
  - Gestational diabetes [Unknown]
  - Premature labour [Unknown]
  - Polyhydramnios [Unknown]
